FAERS Safety Report 9132870 (Version 3)
Quarter: 2013Q2

REPORT INFORMATION
  Report Type: Spontaneous
  Country: US (occurrence: US)
  Receive Date: 20130301
  Receipt Date: 20130429
  Transmission Date: 20140414
  Serious: No
  Sender: FDA-Public Use
  Company Number: US-PFIZER INC-2013073374

PATIENT
  Sex: Female

DRUGS (5)
  1. LYRICA [Suspect]
     Dosage: UNK
     Dates: start: 2013
  2. FELDENE [Suspect]
     Dosage: 20 MG, UNK
  3. SEROQUEL [Suspect]
     Dosage: 300 MG, UNK
  4. TIZANIDINE [Suspect]
     Dosage: 4 MG, 3X/DAY
  5. TIZANIDINE [Suspect]
     Dosage: UNK, PRN

REACTIONS (2)
  - Somnolence [Unknown]
  - Fatigue [Unknown]
